FAERS Safety Report 7513248-4 (Version None)
Quarter: 2011Q2

REPORT INFORMATION
  Report Type: 
  Country: None (occurrence: None)
  Receive Date: 20110531
  Receipt Date: 20110517
  Transmission Date: 20111010
  Serious: Yes (Hospitalization)
  Sender: FDA-Public Use
  Company Number: DE-ALEXION-A201100723

PATIENT
  Sex: Male

DRUGS (15)
  1. SOLIRIS [Suspect]
     Dosage: 1200 MG, UNK
     Dates: start: 20110421
  2. OXAZEPAM [Concomitant]
     Dosage: PRN
     Route: 048
  3. SOLIRIS [Suspect]
     Indication: PAROXYSMAL NOCTURNAL HAEMOGLOBINURIA
     Dosage: 600 MG, UNK
     Route: 042
     Dates: start: 20110113, end: 20110203
  4. SOLIRIS [Suspect]
     Dosage: 900 MG, UNK
     Route: 042
     Dates: start: 20110210, end: 20110224
  5. SOLIRIS [Suspect]
     Dosage: 1200 MG, Q2W
     Route: 042
     Dates: start: 20110310, end: 20110407
  6. DELIX PLUS [Concomitant]
     Indication: HYPERTENSION
     Route: 048
  7. FUROSEMIDE [Concomitant]
     Dosage: 40 MG, UNK
     Route: 048
  8. METFORMIN HCL [Concomitant]
     Indication: TYPE 2 DIABETES MELLITUS
     Route: 048
  9. CARMEN [Concomitant]
     Indication: HYPERTENSION
     Route: 048
  10. HUMALOG [Concomitant]
     Indication: TYPE 2 DIABETES MELLITUS
     Route: 058
  11. GODAMED [Concomitant]
     Dosage: 100 MG, UNK
     Route: 048
  12. METOPROLOL TARTRATE [Concomitant]
     Indication: HYPERTENSION
     Route: 048
  13. TORSEMIDE [Concomitant]
     Indication: CARDIAC FAILURE
     Route: 048
  14. ALLOPURINOL [Concomitant]
     Dosage: 100 MG, UNK
     Route: 048
  15. DIGITOXIN TAB [Concomitant]
     Indication: CARDIAC FAILURE
     Route: 048

REACTIONS (2)
  - SEPSIS [None]
  - ERYSIPELAS [None]
